FAERS Safety Report 25611496 (Version 1)
Quarter: 2025Q3

REPORT INFORMATION
  Report Type: Spontaneous
  Country: US (occurrence: None)
  Receive Date: 20250725
  Receipt Date: 20250725
  Transmission Date: 20251020
  Serious: Yes (Life-Threatening, Other)
  Sender: FDA-CTU
  Company Number: None

PATIENT
  Age: 89 Year
  Sex: Male
  Weight: 71 kg

DRUGS (1)
  1. NEOSTIGMINE [Suspect]
     Active Substance: NEOSTIGMINE
     Indication: Intestinal pseudo-obstruction
     Route: 040
     Dates: start: 20250506, end: 20250506

REACTIONS (3)
  - Atrioventricular block second degree [None]
  - Atrioventricular block complete [None]
  - Cardio-respiratory arrest [None]

NARRATIVE: CASE EVENT DATE: 20250506
